FAERS Safety Report 24223773 (Version 4)
Quarter: 2024Q4

REPORT INFORMATION
  Report Type: Spontaneous
  Country: AR (occurrence: AR)
  Receive Date: 20240819
  Receipt Date: 20241119
  Transmission Date: 20250115
  Serious: Yes (Other)
  Sender: GLAXOSMITHKLINE
  Company Number: AR-GLAXOSMITHKLINE-AR2024AMR017741

PATIENT

DRUGS (1)
  1. NUCALA [Suspect]
     Active Substance: MEPOLIZUMAB
     Indication: Asthma
     Dosage: 100 MG, Q4W: EVERY 28 DAYS
     Route: 058
     Dates: start: 20231227

REACTIONS (14)
  - Choking [Unknown]
  - Fall [Not Recovered/Not Resolved]
  - Bronchial disorder [Not Recovered/Not Resolved]
  - Asthma [Not Recovered/Not Resolved]
  - Multiple allergies [Not Recovered/Not Resolved]
  - Bronchitis [Not Recovered/Not Resolved]
  - Influenza [Unknown]
  - Cough [Unknown]
  - Secretion discharge [Not Recovered/Not Resolved]
  - Ill-defined disorder [Unknown]
  - Back pain [Unknown]
  - Product dose omission issue [Unknown]
  - Sciatica [Unknown]
  - Malaise [Unknown]

NARRATIVE: CASE EVENT DATE: 20240201
